APPROVED DRUG PRODUCT: MEVACOR
Active Ingredient: LOVASTATIN
Strength: 10MG **Federal Register determination that product was not discontinued or withdrawn for safety or effectiveness reasons**
Dosage Form/Route: TABLET;ORAL
Application: N019643 | Product #002
Applicant: MERCK RESEARCH LABORATORIES DIV MERCK CO INC
Approved: Mar 28, 1991 | RLD: Yes | RS: No | Type: DISCN